FAERS Safety Report 8588228-0 (Version None)
Quarter: 2012Q3

REPORT INFORMATION
  Report Type: 
  Country: None (occurrence: None)
  Receive Date: 20120803
  Receipt Date: 20120803
  Transmission Date: 20120928
  Serious: Yes (Life-Threatening, Disabling)
  Sender: FDA-Public Use
  Company Number: None

PATIENT
  Age: 47 Year
  Sex: Female
  Weight: 91.6266 kg

DRUGS (1)
  1. TOPIRAMATE [Suspect]
     Indication: MIGRAINE PROPHYLAXIS
     Dosage: 25MG TABLETS 3 TIMES DAILY UNK
     Dates: start: 20120623, end: 20120625

REACTIONS (27)
  - DIZZINESS [None]
  - NERVE INJURY [None]
  - EAR PAIN [None]
  - MEMORY IMPAIRMENT [None]
  - PARAESTHESIA [None]
  - CONFUSIONAL STATE [None]
  - HEADACHE [None]
  - CONSTIPATION [None]
  - ABDOMINAL PAIN UPPER [None]
  - HYPOAESTHESIA [None]
  - BURNING SENSATION [None]
  - DISTURBANCE IN ATTENTION [None]
  - BACK PAIN [None]
  - TACHYCARDIA [None]
  - HYPOAESTHESIA ORAL [None]
  - BONE PAIN [None]
  - BLOOD PRESSURE DIASTOLIC INCREASED [None]
  - OEDEMA PERIPHERAL [None]
  - DRY MOUTH [None]
  - DYSPNOEA [None]
  - PAIN IN EXTREMITY [None]
  - NERVOUSNESS [None]
  - INITIAL INSOMNIA [None]
  - MIDDLE INSOMNIA [None]
  - MYALGIA [None]
  - EYE PAIN [None]
  - DYSSTASIA [None]
